FAERS Safety Report 8477269-X (Version None)
Quarter: 2012Q2

REPORT INFORMATION
  Report Type: 
  Country: None (occurrence: None)
  Receive Date: 20120629
  Receipt Date: 20120619
  Transmission Date: 20120825
  Serious: Yes (Hospitalization)
  Sender: FDA-Public Use
  Company Number: CA-JNJFOC-20120609577

PATIENT
  Sex: Female
  Weight: 71 kg

DRUGS (4)
  1. REMICADE [Suspect]
     Route: 042
     Dates: start: 20111030
  2. METHOTREXATE [Concomitant]
     Route: 048
  3. REMICADE [Suspect]
     Indication: CROHN'S DISEASE
     Dosage: DOSE INCREASED
     Route: 042
  4. PREDNISONE [Suspect]
     Indication: PRODUCT USED FOR UNKNOWN INDICATION
     Dosage: TAPERING DOSE STARTING WITH 40MG ONCE DAILY AND DECREASING TO 5MG ONCE WEEKLY
     Route: 065

REACTIONS (6)
  - WEIGHT DECREASED [None]
  - DIARRHOEA [None]
  - ABDOMINAL PAIN [None]
  - PALPITATIONS [None]
  - DECREASED APPETITE [None]
  - ASTHENIA [None]
